FAERS Safety Report 6149255-6 (Version None)
Quarter: 2009Q2

REPORT INFORMATION
  Report Type: 
  Country: None (occurrence: None)
  Receive Date: 20090409
  Receipt Date: 20060727
  Transmission Date: 20091009
  Serious: Yes (Other)
  Sender: FDA-Public Use
  Company Number: US-CELGENEUS-THAUS200600181

PATIENT
  Age: 76 Year
  Sex: Female

DRUGS (6)
  1. THALIDOMIDE [Suspect]
     Indication: MULTIPLE MYELOMA
     Route: 048
  2. DEXAMETHASONE 1.5MG TAB [Concomitant]
     Indication: MULTIPLE MYELOMA
     Route: 065
  3. METOPROLOL [Concomitant]
     Indication: HYPERTENSION
     Route: 065
  4. FUROSEMIDE [Concomitant]
     Indication: HYPERTENSION
     Route: 065
  5. WARFARIN [Concomitant]
     Indication: DEEP VEIN THROMBOSIS
     Route: 065
  6. INSULIN [Concomitant]
     Indication: DIABETES MELLITUS
     Dosage: SLIDING-SCALE
     Route: 065

REACTIONS (9)
  - ABDOMINAL DISCOMFORT [None]
  - ALANINE AMINOTRANSFERASE INCREASED [None]
  - ASPARTATE AMINOTRANSFERASE INCREASED [None]
  - DECREASED APPETITE [None]
  - FATIGUE [None]
  - HEPATOTOXICITY [None]
  - INTERNATIONAL NORMALISED RATIO INCREASED [None]
  - JAUNDICE [None]
  - NAUSEA [None]
